FAERS Safety Report 11749260 (Version 2)
Quarter: 2016Q1

REPORT INFORMATION
  Report Type: Report from Study
  Country: IT (occurrence: IT)
  Receive Date: 20151118
  Receipt Date: 20160226
  Transmission Date: 20160525
  Serious: Yes (Hospitalization, Other)
  Sender: FDA-Public Use
  Company Number: IT-TEVA-608147ACC

PATIENT
  Sex: Male
  Weight: 69 kg

DRUGS (10)
  1. EFFENTORA - TEVA B.V. [Suspect]
     Active Substance: FENTANYL CITRATE
     Indication: PAIN
     Dosage: 200 UG AS NECESSARY
     Route: 060
  2. INSULIN [Concomitant]
     Active Substance: INSULIN NOS
     Dates: start: 20150519
  3. NIVOLUMAB [Suspect]
     Active Substance: NIVOLUMAB
     Indication: LUNG CARCINOMA CELL TYPE UNSPECIFIED STAGE IV
     Dosage: 3 MG/KG CYCLICAL
     Route: 042
     Dates: start: 20150811, end: 20150825
  4. PANTOPRAZOLE [Concomitant]
     Active Substance: PANTOPRAZOLE SODIUM
  5. SIMETHICONE (DIMETHICONE) [Concomitant]
     Active Substance: DIMETHICONE
  6. PLASIL [Concomitant]
     Active Substance: METOCLOPRAMIDE HYDROCHLORIDE
  7. MOVICOL [Concomitant]
     Active Substance: POLYETHYLENE GLYCOL 3350\POTASSIUM CHLORIDE\SODIUM BICARBONATE\SODIUM CHLORIDE
  8. LANTUS [Concomitant]
     Active Substance: INSULIN GLARGINE
     Dates: start: 20150519
  9. TARGIN - MUNDIPHARMA PHARMACEUTICALS S.R.L. [Suspect]
     Active Substance: NALOXONE HYDROCHLORIDE\OXYCODONE HYDROCHLORIDE
     Indication: PAIN
     Dosage: 80 MG DAILY
     Route: 048
     Dates: start: 20150929
  10. CARDIOASPIRIN [Concomitant]
     Active Substance: ASPIRIN

REACTIONS (14)
  - Non-small cell lung cancer [Unknown]
  - Fatigue [Unknown]
  - Flatulence [Unknown]
  - Vomiting [Unknown]
  - Abdominal pain [Unknown]
  - Constipation [Unknown]
  - Weight decreased [Unknown]
  - Nausea [Recovered/Resolved]
  - Pain [Recovered/Resolved]
  - Depression [Unknown]
  - Asthenia [Unknown]
  - Decreased appetite [Unknown]
  - Retching [Recovered/Resolved]
  - Cachexia [Unknown]
